FAERS Safety Report 8485284-5 (Version None)
Quarter: 2012Q2

REPORT INFORMATION
  Report Type: 
  Country: None (occurrence: None)
  Receive Date: 20120627
  Receipt Date: 20120627
  Transmission Date: 20120825
  Serious: No
  Sender: FDA-Public Use
  Company Number: None

PATIENT
  Age: 48 Year
  Sex: Female

DRUGS (1)
  1. ESCITALOPRAM [Suspect]
     Dosage: ESCITALOPRAM 20MG 1/D ORAL
     Route: 048
     Dates: start: 20120515

REACTIONS (3)
  - PRODUCT SUBSTITUTION ISSUE [None]
  - ANXIETY [None]
  - DRUG INEFFECTIVE [None]
